FAERS Safety Report 9547673 (Version 2)
Quarter: 2013Q4

REPORT INFORMATION
  Report Type: Spontaneous
  Country: FR (occurrence: None)
  Receive Date: 20130920
  Receipt Date: 20131015
  Transmission Date: 20140711
  Serious: Yes (Hospitalization, Other)
  Sender: FDA-Public Use
  Company Number: DSM-2013-00848

PATIENT
  Age: 67 Year
  Sex: Female

DRUGS (1)
  1. OLMETEC [Suspect]
     Indication: HYPERTENSION
     Dosage: 20 MG 1 IN 1 D
     Route: 048
     Dates: start: 201110, end: 20130210

REACTIONS (2)
  - Diarrhoea [None]
  - Hypotension [None]
